FAERS Safety Report 12165613 (Version 3)
Quarter: 2016Q3

REPORT INFORMATION
  Report Type: Spontaneous
  Country: US (occurrence: US)
  Receive Date: 20160309
  Receipt Date: 20160815
  Transmission Date: 20161109
  Serious: Yes (Other)
  Sender: FDA-Public Use
  Company Number: US-IMPAX LABORATORIES, INC-2016-IPXL-00224

PATIENT
  Age: 81 Year
  Sex: Female
  Weight: 52 kg

DRUGS (5)
  1. RYTARY [Suspect]
     Active Substance: CARBIDOPA\LEVODOPA
     Dosage: 61.25 /245 MG, 1 CAPSULES 3 TIMES DAILY
     Route: 048
     Dates: start: 201512, end: 201602
  2. RYTARY [Suspect]
     Active Substance: CARBIDOPA\LEVODOPA
     Dosage: 23.75/95 MG 3 CAPSULES 3 TIMES DAILY
     Route: 048
     Dates: start: 201510, end: 201512
  3. ALENDRONATE [Concomitant]
     Active Substance: ALENDRONATE SODIUM
     Indication: BONE DISORDER
     Dosage: 70 MG, UNK
     Route: 065
     Dates: start: 20160213
  4. RYTARY [Suspect]
     Active Substance: CARBIDOPA\LEVODOPA
     Dosage: 23.75/95 MG 2 CAPSULES 3 TIMES DAILY
     Route: 048
     Dates: start: 201602
  5. RYTARY [Suspect]
     Active Substance: CARBIDOPA\LEVODOPA
     Indication: PARKINSON^S DISEASE
     Dosage: 23.75/95 MG 2 CAPSULES 3 TIMES DAILY
     Route: 048
     Dates: start: 201509, end: 201510

REACTIONS (6)
  - Osteoporosis [Recovering/Resolving]
  - Dizziness [Recovering/Resolving]
  - Pelvic fracture [Recovering/Resolving]
  - Drug effect incomplete [Unknown]
  - Fall [Recovering/Resolving]
  - Malaise [Recovering/Resolving]

NARRATIVE: CASE EVENT DATE: 2015
